FAERS Safety Report 9680790 (Version 2)
Quarter: 2013Q4

REPORT INFORMATION
  Report Type: Spontaneous
  Country: AT (occurrence: AT)
  Receive Date: 20131111
  Receipt Date: 20131206
  Transmission Date: 20140711
  Serious: Yes (Death, Hospitalization)
  Sender: FDA-Public Use
  Company Number: PHHY2013AT126664

PATIENT
  Age: 72 Year
  Sex: Male

DRUGS (11)
  1. CICLOSPORIN [Suspect]
     Indication: LIVER TRANSPLANT
  2. CICLOSPORIN [Suspect]
     Indication: IMMUNOSUPPRESSION
  3. BASILIXIMAB [Suspect]
     Indication: LIVER TRANSPLANT
  4. BASILIXIMAB [Suspect]
     Indication: IMMUNOSUPPRESSION
  5. MYCOPHENOLATE MOFETIL [Suspect]
     Indication: LIVER TRANSPLANT
  6. MYCOPHENOLATE MOFETIL [Suspect]
     Indication: IMMUNOSUPPRESSION
  7. TACROLIMUS [Suspect]
     Indication: LIVER TRANSPLANT
  8. TACROLIMUS [Suspect]
     Indication: IMMUNOSUPPRESSION
  9. METHYLPREDNISOLONE [Suspect]
     Indication: GRAFT VERSUS HOST DISEASE
     Dosage: 10 MG/KG, UNK
     Route: 042
  10. CORTICOSTEROIDS [Suspect]
     Indication: IMMUNOSUPPRESSION
  11. CORTICOSTEROIDS [Suspect]
     Indication: PROPHYLAXIS

REACTIONS (11)
  - Multi-organ failure [Fatal]
  - Sepsis [Fatal]
  - Graft versus host disease in skin [Unknown]
  - Rash maculo-papular [Unknown]
  - Blister [Unknown]
  - Graft versus host disease in intestine [Unknown]
  - Diarrhoea [Unknown]
  - Bone marrow failure [Recovered/Resolved]
  - Pancytopenia [Recovered/Resolved]
  - Hyperglycaemia [Unknown]
  - Drug ineffective [Unknown]
